FAERS Safety Report 9483737 (Version 1)
Quarter: 2013Q3

REPORT INFORMATION
  Report Type: Spontaneous
  Country: US (occurrence: US)
  Receive Date: 20130828
  Receipt Date: 20130828
  Transmission Date: 20140515
  Serious: Yes (Hospitalization)
  Sender: FDA-Public Use
  Company Number: US-AMGEN-KDL323518

PATIENT
  Age: 51 Year
  Sex: Female
  Weight: 60.8 kg

DRUGS (7)
  1. PROCRIT [Suspect]
     Indication: PRODUCT USED FOR UNKNOWN INDICATION
     Dosage: 40000 IU, UNK
     Route: 065
     Dates: start: 20080917
  2. LITHIUM [Concomitant]
     Dosage: UNK UNK, BID
  3. OMEPRAZOLE [Concomitant]
     Dosage: 40 MG, QD
  4. CLONAZEPAM [Concomitant]
     Dosage: UNK UNK, BID
  5. CLOZAPINE [Concomitant]
  6. DOCUSATE SODIUM [Concomitant]
     Dosage: UNK UNK, BID
  7. NEUPOGEN [Concomitant]
     Dosage: 480 ?G, UNK
     Route: 058

REACTIONS (1)
  - Convulsion [Unknown]
